FAERS Safety Report 6859561-5 (Version None)
Quarter: 2010Q3

REPORT INFORMATION
  Report Type: 
  Country: None (occurrence: None)
  Receive Date: 20100719
  Receipt Date: 20080228
  Transmission Date: 20110219
  Serious: No
  Sender: FDA-Public Use
  Company Number: US-PFIZER INC-2008019330

PATIENT
  Sex: Female
  Weight: 65 kg

DRUGS (2)
  1. CHANTIX [Suspect]
     Indication: SMOKING CESSATION THERAPY
     Dates: start: 20080101
  2. ADVIL LIQUI-GELS [Concomitant]
     Indication: HEADACHE

REACTIONS (3)
  - ABNORMAL DREAMS [None]
  - HEPATIC ENZYME INCREASED [None]
  - NAUSEA [None]
